FAERS Safety Report 19143518 (Version 1)
Quarter: 2021Q2

REPORT INFORMATION
  Report Type: Spontaneous
  Country: US (occurrence: US)
  Receive Date: 20210415
  Receipt Date: 20210415
  Transmission Date: 20210717
  Serious: Yes (Other)
  Sender: FDA-Public Use
  Company Number: US-JNJFOC-20210420914

PATIENT
  Sex: Female

DRUGS (1)
  1. STELARA [Suspect]
     Active Substance: USTEKINUMAB
     Indication: HIDRADENITIS
     Route: 058

REACTIONS (4)
  - Product use in unapproved indication [Unknown]
  - Breast operation [Unknown]
  - Off label use [Unknown]
  - Surgery [Unknown]

NARRATIVE: CASE EVENT DATE: 20210409
